FAERS Safety Report 20368152 (Version 2)
Quarter: 2023Q2

REPORT INFORMATION
  Report Type: Report from Study
  Country: CO (occurrence: CO)
  Receive Date: 20220124
  Receipt Date: 20230503
  Transmission Date: 20230721
  Serious: Yes (Other)
  Sender: FDA-Public Use
  Company Number: CO-SA-SAC20220121000001

PATIENT
  Sex: Male

DRUGS (2)
  1. DUPILUMAB [Suspect]
     Active Substance: DUPILUMAB
     Dosage: 200 MG, QOW
     Route: 058
  2. UNSPECIFIED INGREDIENT [Suspect]
     Active Substance: UNSPECIFIED INGREDIENT
     Dosage: UNK

REACTIONS (2)
  - Choking [Not Recovered/Not Resolved]
  - Dyspnoea [Not Recovered/Not Resolved]
